FAERS Safety Report 9412587 (Version 1)
Quarter: 2013Q3

REPORT INFORMATION
  Report Type: Spontaneous
  Country: US (occurrence: US)
  Receive Date: 20130722
  Receipt Date: 20130722
  Transmission Date: 20140515
  Serious: Yes (Other)
  Sender: FDA-Public Use
  Company Number: US-BAYER-2013-086203

PATIENT
  Age: 65 Year
  Sex: Female
  Weight: 58.96 kg

DRUGS (4)
  1. ALKA-SELTZER FRUIT CHEWS [Suspect]
     Indication: DYSPEPSIA
     Dosage: 1 DF, PRN
     Route: 048
     Dates: start: 201307, end: 20130711
  2. BAYER GENUINE ASPIRIN ORIGINAL STRENGTH [Suspect]
     Indication: HEADACHE
     Dosage: 2 DF, PRN
     Route: 048
     Dates: start: 1952, end: 201302
  3. GLIPIZIDE W/METFORMIN [Concomitant]
  4. GLIPIZIDE W/METFORMIN [Concomitant]

REACTIONS (5)
  - Blood glucose increased [None]
  - Blood glucose increased [Recovered/Resolved]
  - Hyperchlorhydria [None]
  - Abdominal discomfort [None]
  - Off label use [None]
